FAERS Safety Report 6272010-3 (Version None)
Quarter: 2009Q3

REPORT INFORMATION
  Report Type: 
  Country: None (occurrence: None)
  Receive Date: 20090717
  Receipt Date: 20090714
  Transmission Date: 20100115
  Serious: No
  Sender: FDA-Public Use
  Company Number: US-B.I. PHARMACEUTICALS,INC./RIDGEFIELD-2009-BP-08428BP

PATIENT
  Age: 20 Year
  Sex: Male

DRUGS (2)
  1. ZANTAC [Suspect]
     Indication: URTICARIA
     Dosage: 300 MG
     Route: 048
     Dates: start: 20090706
  2. ZYRTEC [Suspect]
     Indication: URTICARIA
     Dosage: 10 MG

REACTIONS (1)
  - AMPHETAMINES POSITIVE [None]
